FAERS Safety Report 7146248-7 (Version None)
Quarter: 2010Q4

REPORT INFORMATION
  Report Type: 
  Country: None (occurrence: None)
  Receive Date: 20101208
  Receipt Date: 20101201
  Transmission Date: 20110411
  Serious: Yes (Hospitalization)
  Sender: FDA-Public Use
  Company Number: BR-US-EMD SERONO, INC.-7030343

PATIENT
  Sex: Female

DRUGS (3)
  1. REBIF [Suspect]
     Indication: RELAPSING-REMITTING MULTIPLE SCLEROSIS
     Dates: start: 20060501
  2. BACLOFEN [Concomitant]
  3. PARACETAMOL [Concomitant]

REACTIONS (4)
  - BALANCE DISORDER [None]
  - INJECTION SITE INFLAMMATION [None]
  - MUSCULAR WEAKNESS [None]
  - URINARY TRACT INFECTION [None]
